FAERS Safety Report 14360604 (Version 1)
Quarter: 2018Q1

REPORT INFORMATION
  Report Type: Other
  Country: DE (occurrence: DE)
  Receive Date: 20180106
  Receipt Date: 20180106
  Transmission Date: 20180509
  Serious: Yes (Other)
  Sender: FDA-Public Use
  Company Number: DE-GLENMARK PHARMACEUTICALS-2017GMK030349

PATIENT

DRUGS (2)
  1. LEVOMEPROMAZIN                     /00038601/ [Interacting]
     Active Substance: LEVOMEPROMAZINE
     Indication: PRODUCT USED FOR UNKNOWN INDICATION
     Dosage: UNK
     Route: 048
  2. METFORMIN HYDROCHLORIDE. [Suspect]
     Active Substance: METFORMIN HYDROCHLORIDE
     Indication: PRODUCT USED FOR UNKNOWN INDICATION
     Dosage: 500 MG, UNK
     Route: 048

REACTIONS (10)
  - Blood glucose abnormal [Unknown]
  - Gastric haemorrhage [Unknown]
  - Drug interaction [Unknown]
  - Contusion [Unknown]
  - Renal failure [Unknown]
  - Adverse drug reaction [Unknown]
  - Intestinal haemorrhage [Unknown]
  - Confusional state [Unknown]
  - Hyperhidrosis [Unknown]
  - Dizziness [Unknown]
